FAERS Safety Report 17063947 (Version 5)
Quarter: 2020Q2

REPORT INFORMATION
  Report Type: Report from Study
  Country: CO (occurrence: CO)
  Receive Date: 20191122
  Receipt Date: 20200508
  Transmission Date: 20200713
  Serious: Yes (Other)
  Sender: FDA-Public Use
  Company Number: CO-SA-2019SA320313

PATIENT
  Age: 46 Year
  Sex: Male

DRUGS (1)
  1. ALEMTUZUMAB [Suspect]
     Active Substance: ALEMTUZUMAB
     Indication: MULTIPLE SCLEROSIS
     Dosage: 12 MG, QD
     Route: 041
     Dates: start: 20191022, end: 20191026

REACTIONS (14)
  - Leukocyturia [Recovered/Resolved]
  - Balance disorder [Recovered/Resolved]
  - Asthenia [Unknown]
  - Lymphocyte count decreased [Recovered/Resolved]
  - Loss of consciousness [Recovered/Resolved]
  - Tremor [Unknown]
  - Rash [Recovered/Resolved]
  - White blood cells urine positive [Recovered/Resolved]
  - Crystal urine present [Recovered/Resolved]
  - Vomiting [Recovered/Resolved]
  - Pyrexia [Recovered/Resolved]
  - Headache [Unknown]
  - White blood cell count decreased [Recovered/Resolved]
  - Granulocyte count decreased [Recovered/Resolved]

NARRATIVE: CASE EVENT DATE: 20191022
